FAERS Safety Report 6293243-6 (Version None)
Quarter: 2009Q3

REPORT INFORMATION
  Report Type: 
  Country: None (occurrence: None)
  Receive Date: 20090731
  Receipt Date: 20090721
  Transmission Date: 20100115
  Serious: Yes (Hospitalization)
  Sender: FDA-Public Use
  Company Number: US-ABBOTT-09P-163-0586574-00

PATIENT
  Age: 65 Year
  Sex: Male

DRUGS (6)
  1. MAVIK [Suspect]
     Indication: HYPERTENSION
     Dates: start: 20060101, end: 20090501
  2. FLOMAX [Suspect]
     Indication: BENIGN PROSTATIC HYPERPLASIA
     Route: 048
     Dates: start: 20070101
  3. LESCOL [Suspect]
     Indication: DRUG USE FOR UNKNOWN INDICATION
     Dates: start: 20070101, end: 20090601
  4. ASPIRIN [Suspect]
     Indication: PROPHYLAXIS
     Dates: start: 20060101, end: 20090601
  5. RANITIDINE [Suspect]
     Indication: GASTROOESOPHAGEAL REFLUX DISEASE
     Dates: start: 20060101
  6. COPAXONE [Suspect]
     Indication: MULTIPLE SCLEROSIS
     Dates: start: 20080601, end: 20090501

REACTIONS (5)
  - ANGIOEDEMA [None]
  - CALCULUS BLADDER [None]
  - TRANSIENT ISCHAEMIC ATTACK [None]
  - URINARY TRACT INFECTION [None]
  - URTICARIA [None]
